FAERS Safety Report 6241754-1 (Version None)
Quarter: 2009Q2

REPORT INFORMATION
  Report Type: 
  Country: None (occurrence: None)
  Receive Date: 20090623
  Receipt Date: 20090611
  Transmission Date: 20091009
  Serious: Yes (Hospitalization)
  Sender: FDA-Public Use
  Company Number: JP-ELI_LILLY_AND_COMPANY-JP200906004153

PATIENT
  Weight: 3.6 kg

DRUGS (3)
  1. ZYPREXA [Suspect]
     Indication: SCHIZOPHRENIA
     Dosage: 1.25 MG, DAILY (1/D)
     Route: 064
     Dates: end: 20090509
  2. KAYTWO [Concomitant]
     Indication: PROPHYLAXIS
     Dosage: 2 ML, UNK
     Route: 048
     Dates: start: 20090509, end: 20090509
  3. TARIVID /00731801/ [Concomitant]
     Indication: PROPHYLAXIS
     Route: 047
     Dates: start: 20090509, end: 20090509

REACTIONS (4)
  - DRUG EXPOSURE DURING PREGNANCY [None]
  - GASTRIC VOLVULUS [None]
  - IRRITABILITY [None]
  - TREMOR NEONATAL [None]
